FAERS Safety Report 19406442 (Version 4)
Quarter: 2021Q3

REPORT INFORMATION
  Report Type: Spontaneous
  Country: US (occurrence: US)
  Receive Date: 20210611
  Receipt Date: 20210901
  Transmission Date: 20211014
  Serious: No
  Sender: FDA-Public Use
  Company Number: US-PFIZER INC-2021400329

PATIENT
  Age: 45 Year
  Sex: Female
  Weight: 56.24 kg

DRUGS (1)
  1. DEPO?PROVERA [Suspect]
     Active Substance: MEDROXYPROGESTERONE ACETATE
     Indication: CONTRACEPTION
     Dosage: 1X PER 3 MONTHS
     Dates: start: 20210404

REACTIONS (3)
  - Device delivery system issue [Unknown]
  - Needle issue [Unknown]
  - Drug dose omission by device [Unknown]
